FAERS Safety Report 22243381 (Version 4)
Quarter: 2023Q4

REPORT INFORMATION
  Report Type: Spontaneous
  Country: US (occurrence: US)
  Receive Date: 20230424
  Receipt Date: 20231113
  Transmission Date: 20240110
  Serious: No
  Sender: FDA-Public Use
  Company Number: US-PFIZER INC-202300163852

PATIENT
  Sex: Female

DRUGS (1)
  1. DEPO-PROVERA [Suspect]
     Active Substance: MEDROXYPROGESTERONE ACETATE
     Indication: Contraception
     Dosage: 1 UNK, EVERY 3 MONTHS (EVERY THREE MONTHS I GOT ONE SHOT)

REACTIONS (2)
  - Arthralgia [Not Recovered/Not Resolved]
  - Product use issue [Unknown]
